FAERS Safety Report 20801914 (Version 4)
Quarter: 2024Q1

REPORT INFORMATION
  Report Type: Report from Study
  Country: US (occurrence: US)
  Receive Date: 20220509
  Receipt Date: 20240114
  Transmission Date: 20240410
  Serious: Yes (Hospitalization, Other)
  Sender: FDA-Public Use
  Company Number: US-TAKEDA-2022TUS012930

PATIENT
  Sex: Female

DRUGS (1)
  1. HUMAN IMMUNOGLOBULIN G [Suspect]
     Active Substance: HUMAN IMMUNOGLOBULIN G
     Indication: Primary immunodeficiency syndrome
     Dosage: UNK
     Route: 058

REACTIONS (8)
  - Nervous system disorder [Unknown]
  - Coagulopathy [Unknown]
  - Fall [Unknown]
  - Lower limb fracture [Unknown]
  - Infusion site rash [Unknown]
  - Neck pain [Unknown]
  - Infusion site pain [Unknown]
  - Infusion site swelling [Unknown]
